FAERS Safety Report 21370044 (Version 1)
Quarter: 2022Q3

REPORT INFORMATION
  Report Type: Spontaneous
  Country: US (occurrence: None)
  Receive Date: 20220923
  Receipt Date: 20220923
  Transmission Date: 20221027
  Serious: No
  Sender: FDA-Public Use
  Company Number: 2022A324738

PATIENT
  Age: 77 Year
  Sex: Female
  Weight: 53.5 kg

DRUGS (2)
  1. CRESTOR [Interacting]
     Active Substance: ROSUVASTATIN CALCIUM
     Indication: Product used for unknown indication
     Route: 048
     Dates: start: 202109, end: 20220915
  2. AMIODARONE [Interacting]
     Active Substance: AMIODARONE
     Route: 065

REACTIONS (11)
  - Drug interaction [Unknown]
  - Weight decreased [Unknown]
  - Decreased appetite [Unknown]
  - Visual impairment [Unknown]
  - Somnolence [Unknown]
  - Mental disorder [Unknown]
  - Skin laceration [Unknown]
  - Peripheral swelling [Unknown]
  - Impaired healing [Unknown]
  - Fatigue [Unknown]
  - Depression [Unknown]

NARRATIVE: CASE EVENT DATE: 20211201
